FAERS Safety Report 21341562 (Version 1)
Quarter: 2022Q3

REPORT INFORMATION
  Report Type: Spontaneous
  Country: US (occurrence: None)
  Receive Date: 20220915
  Receipt Date: 20220915
  Transmission Date: 20221027
  Serious: Yes (Hospitalization, Other)
  Sender: FDA-Public Use
  Company Number: None

PATIENT
  Age: 93 Year
  Sex: Female
  Weight: 47.9 kg

DRUGS (8)
  1. PAXLOVID [Suspect]
     Active Substance: NIRMATRELVIR\RITONAVIR
  2. DILTIAZEM [Concomitant]
     Active Substance: DILTIAZEM
  3. TOPROL XL [Concomitant]
     Active Substance: METOPROLOL SUCCINATE
  4. PROLIA [Concomitant]
     Active Substance: DENOSUMAB
  5. FUROSEMIDE [Concomitant]
     Active Substance: FUROSEMIDE
  6. ESTRADIOL [Concomitant]
     Active Substance: ESTRADIOL
  7. EMPAGLIFLOZIN [Concomitant]
     Active Substance: EMPAGLIFLOZIN
  8. APIXABAN [Suspect]
     Active Substance: APIXABAN

REACTIONS (2)
  - Cerebrovascular accident [None]
  - Drug interaction [None]

NARRATIVE: CASE EVENT DATE: 20220913
